FAERS Safety Report 15524035 (Version 1)
Quarter: 2018Q4

REPORT INFORMATION
  Report Type: Spontaneous
  Country: US (occurrence: US)
  Receive Date: 20181018
  Receipt Date: 20181018
  Transmission Date: 20190205
  Serious: No
  Sender: FDA-Public Use
  Company Number: US-HIKMA PHARMACEUTICALS USA INC.-US-H14001-17-05146

PATIENT
  Age: 65 Year
  Sex: Female

DRUGS (2)
  1. INFUMORPH [Suspect]
     Active Substance: MORPHINE SULFATE
     Indication: BACK PAIN
     Route: 037
  2. LIORESAL [Concomitant]
     Active Substance: BACLOFEN
     Indication: BACK PAIN
     Route: 037

REACTIONS (3)
  - Accidental underdose [Unknown]
  - Back pain [Unknown]
  - Torticollis [Unknown]

NARRATIVE: CASE EVENT DATE: 201701
